FAERS Safety Report 23555385 (Version 1)
Quarter: 2024Q1

REPORT INFORMATION
  Report Type: Spontaneous
  Country: GB (occurrence: GB)
  Receive Date: 20240222
  Receipt Date: 20240222
  Transmission Date: 20240410
  Serious: Yes (Life-Threatening)
  Sender: FDA-Public Use
  Company Number: GB-BAUSCH-BL-2024-002614

PATIENT
  Age: 41 Year
  Sex: Female

DRUGS (15)
  1. HYDROCORTISONE [Suspect]
     Active Substance: HYDROCORTISONE
     Indication: Hypoglycaemia
     Dosage: APPROXIMATELY ONE YEAR
     Route: 065
     Dates: start: 2009
  2. DEXAMETHASONE [Suspect]
     Active Substance: DEXAMETHASONE
     Indication: Hypoglycaemia
     Dosage: APPROXIMATELY ONE YEAR
     Route: 065
     Dates: start: 2008
  3. PREDNISOLONE [Suspect]
     Active Substance: PREDNISOLONE
     Indication: Hypoglycaemia
     Route: 065
     Dates: start: 2011
  4. OCTREOTIDE [Suspect]
     Active Substance: OCTREOTIDE\OCTREOTIDE ACETATE
     Indication: Hypoglycaemia
     Route: 058
     Dates: start: 2011
  5. SOMATROPIN [Suspect]
     Active Substance: SOMATROPIN
     Indication: Hypoglycaemia
     Dosage: APPROXIMATELY ONE YEAR
     Route: 065
     Dates: start: 2009
  6. DEXTROSE [Suspect]
     Active Substance: DEXTROSE\DEXTROSE MONOHYDRATE
     Indication: Hypoglycaemia
     Route: 065
     Dates: start: 201107
  7. EVEROLIMUS [Suspect]
     Active Substance: EVEROLIMUS
     Indication: Hypoglycaemia
     Route: 048
     Dates: start: 2011
  8. HYDROCORTISONE [Concomitant]
     Active Substance: HYDROCORTISONE
     Indication: Product used for unknown indication
     Route: 065
     Dates: start: 2008
  9. DOXORUBICIN [Concomitant]
     Active Substance: DOXORUBICIN
     Indication: Adrenocortical carcinoma
     Dosage: 6 CYCLES
     Route: 065
     Dates: start: 200908, end: 201001
  10. CISPLATIN [Concomitant]
     Active Substance: CISPLATIN
     Indication: Adrenocortical carcinoma
     Dosage: 6 CYCLES
     Route: 065
     Dates: start: 200908, end: 201001
  11. ETOPOSIDE [Concomitant]
     Active Substance: ETOPOSIDE
     Indication: Adrenocortical carcinoma
     Dosage: 6 CYCLES
     Route: 065
     Dates: start: 200908, end: 201001
  12. DEXTROSE [Concomitant]
     Active Substance: DEXTROSE\DEXTROSE MONOHYDRATE
     Indication: Hypoglycaemia
     Route: 065
     Dates: start: 2008
  13. MITOTANE [Concomitant]
     Active Substance: MITOTANE
     Indication: Product used for unknown indication
     Route: 065
  14. MITOTANE [Concomitant]
     Active Substance: MITOTANE
     Dosage: INCREASED
     Route: 065
     Dates: start: 2009
  15. MITOTANE [Concomitant]
     Active Substance: MITOTANE
     Dosage: OVER THE NEXT 3 MONTHS
     Route: 065
     Dates: start: 2009

REACTIONS (1)
  - Therapy non-responder [Unknown]

NARRATIVE: CASE EVENT DATE: 20110101
